FAERS Safety Report 9552337 (Version 1)
Quarter: 2013Q3

REPORT INFORMATION
  Report Type: Spontaneous
  Country: US (occurrence: None)
  Receive Date: 20130724
  Receipt Date: 20130724
  Transmission Date: 20140515
  Serious: Yes (Hospitalization)
  Sender: FDA-Public Use
  Company Number: PHEH2013US001740

PATIENT
  Age: 68 Year
  Sex: Female
  Weight: 132 kg

DRUGS (1)
  1. GLEEVEC (IMATINIB) TABLET, 400 MG [Suspect]
     Indication: SOFT TISSUE CANCER
     Dosage: 400 MG, DAILY, ORAL
     Route: 048
     Dates: start: 20130117

REACTIONS (4)
  - Blood urine present [None]
  - Dehydration [None]
  - Thrombosis [None]
  - Nausea [None]
